FAERS Safety Report 8560150-5 (Version None)
Quarter: 2012Q3

REPORT INFORMATION
  Report Type: 
  Country: None (occurrence: None)
  Receive Date: 20120723
  Receipt Date: 20120711
  Transmission Date: 20120928
  Serious: Yes (Other)
  Sender: FDA-Public Use
  Company Number: 2012MA008783

PATIENT
  Age: 4 Year
  Sex: Male

DRUGS (2)
  1. MELATONIN (MELATONIN) [Suspect]
     Indication: POOR QUALITY SLEEP
     Dosage: 6 MG; PO
     Route: 048
     Dates: start: 20120201
  2. CETIRIZINE HCL [Suspect]
     Indication: SEASONAL ALLERGY
     Dosage: PO
     Route: 048

REACTIONS (2)
  - SOMNOLENCE [None]
  - DEPRESSED LEVEL OF CONSCIOUSNESS [None]
